FAERS Safety Report 22222877 (Version 1)
Quarter: 2023Q2

REPORT INFORMATION
  Report Type: Spontaneous
  Country: US (occurrence: None)
  Receive Date: 20230417
  Receipt Date: 20230417
  Transmission Date: 20230722
  Serious: Yes (Death)
  Sender: FDA-Public Use
  Company Number: None

PATIENT
  Age: 18 Year
  Sex: Female

DRUGS (1)
  1. EPIDIOLEX [Suspect]
     Active Substance: CANNABIDIOL
     Dosage: FREQUENCY : TWICE A DAY;?
     Route: 048
     Dates: end: 20230320

REACTIONS (3)
  - Seizure [None]
  - Hypophagia [None]
  - Eyelid function disorder [None]

NARRATIVE: CASE EVENT DATE: 20230323
